FAERS Safety Report 8185824-X (Version None)
Quarter: 2012Q1

REPORT INFORMATION
  Report Type: 
  Country: None (occurrence: None)
  Receive Date: 20120305
  Receipt Date: 20120227
  Transmission Date: 20120608
  Serious: No
  Sender: FDA-Public Use
  Company Number: US-PFIZER INC-2012022992

PATIENT
  Sex: Male
  Weight: 116.4 kg

DRUGS (18)
  1. VFEND [Suspect]
     Indication: PLEURISY
     Dosage: 200 MG, 2X/DAY
     Dates: start: 20111115, end: 20120126
  2. ALBUTEROL [Concomitant]
  3. GLUCOSAMINE [Concomitant]
  4. METOPROLOL [Concomitant]
  5. OXYCODONE [Concomitant]
  6. VFEND [Suspect]
     Indication: ASPERGILLOSIS
     Dosage: 400 MG, 2X/DAY
     Dates: start: 20111026
  7. MELATONIN [Concomitant]
  8. MIRALAX [Concomitant]
  9. THYROID HORMONES [Concomitant]
  10. ONDANSETRON [Concomitant]
  11. IRON [Concomitant]
  12. LOVASTATIN [Concomitant]
  13. RANITIDINE [Concomitant]
  14. ALLOPURINOL [Concomitant]
  15. ACETYLSALICYLIC ACID [Concomitant]
  16. FISH OIL [Concomitant]
  17. FUROSEMIDE [Concomitant]
  18. LORATADINE [Concomitant]

REACTIONS (6)
  - HYPERHIDROSIS [None]
  - HYPOAESTHESIA [None]
  - PYREXIA [None]
  - OEDEMA PERIPHERAL [None]
  - CHILLS [None]
  - STOMATITIS [None]
